FAERS Safety Report 7315557-0 (Version None)
Quarter: 2011Q1

REPORT INFORMATION
  Report Type: 
  Country: None (occurrence: None)
  Receive Date: 20110218
  Receipt Date: 20110218
  Transmission Date: 20110831
  Serious: Yes (Hospitalization)
  Sender: FDA-Public Use
  Company Number: None

PATIENT
  Age: 84 Year
  Sex: Female
  Weight: 62 kg

DRUGS (7)
  1. PRILOSEC [Concomitant]
  2. NEURONTIN [Concomitant]
  3. ZETIA [Concomitant]
  4. IBUPROFEN [Suspect]
     Indication: PAIN
     Dosage: 200MG 4-6 TABS DAILY PO RECENT
     Route: 048
  5. ISOSORBIDE MON. [Concomitant]
  6. VISINE EYE DROPS [Concomitant]
  7. METOPROLOL [Concomitant]

REACTIONS (7)
  - UPPER GASTROINTESTINAL HAEMORRHAGE [None]
  - ACUTE MYOCARDIAL INFARCTION [None]
  - CHEST PAIN [None]
  - DIZZINESS [None]
  - GASTRIC ULCER [None]
  - ANAEMIA [None]
  - NECK PAIN [None]
